FAERS Safety Report 6279085-6 (Version None)
Quarter: 2009Q3

REPORT INFORMATION
  Report Type: 
  Country: None (occurrence: None)
  Receive Date: 20090723
  Receipt Date: 20080616
  Transmission Date: 20100115
  Serious: No
  Sender: FDA-Public Use
  Company Number: US-AMGEN-KDL287808

PATIENT
  Sex: Male
  Weight: 90.8 kg

DRUGS (9)
  1. PROCRIT [Suspect]
     Indication: PRE-EXISTING DISEASE
     Dates: start: 20071201, end: 20080301
  2. PEGINTERFERON ALFA-2A [Concomitant]
     Dates: start: 20071116, end: 20080101
  3. RIBAVIRIN [Concomitant]
     Dates: start: 20071116, end: 20080101
  4. EFFEXOR [Concomitant]
     Dates: start: 20071101
  5. AMBIEN [Concomitant]
  6. PROMETHAZINE [Concomitant]
  7. CLARITIN [Concomitant]
  8. ACIPHEX [Concomitant]
  9. ADVIL [Concomitant]

REACTIONS (1)
  - SKIN MASS [None]
